FAERS Safety Report 9024939 (Version 4)
Quarter: 2013Q2

REPORT INFORMATION
  Report Type: Report from Study
  Country: US (occurrence: US)
  Receive Date: 20130121
  Receipt Date: 20130507
  Transmission Date: 20140414
  Serious: Yes (Hospitalization, Other)
  Sender: FDA-Public Use
  Company Number: US-JNJFOC-20130105868

PATIENT
  Sex: Female

DRUGS (22)
  1. REMICADE [Suspect]
     Indication: CROHN^S DISEASE
     Dosage: 10MG/SOLUTION/10MG
     Route: 042
  2. REMICADE [Suspect]
     Indication: CROHN^S DISEASE
     Dosage: 10MG/SOLUTION/10MG
     Route: 042
     Dates: start: 20130227
  3. REMICADE [Suspect]
     Indication: CROHN^S DISEASE
     Dosage: 10MG/SOLUTION/10MG
     Route: 042
     Dates: start: 20130102
  4. REMICADE [Suspect]
     Indication: CROHN^S DISEASE
     Dosage: 10MG/SOLUTION/10MG
     Route: 042
     Dates: start: 20121105
  5. REMICADE [Suspect]
     Indication: CROHN^S DISEASE
     Dosage: 10MG/SOLUTION/10MG
     Route: 042
     Dates: start: 20120517
  6. REMICADE [Suspect]
     Indication: CROHN^S DISEASE
     Dosage: 5MG/SOLUTION/5MG
     Route: 042
     Dates: start: 201204
  7. LEVOXYL [Concomitant]
     Route: 065
  8. PREDNISONE [Concomitant]
     Indication: PREMEDICATION
     Route: 065
  9. WARFARIN SODIUM [Concomitant]
     Route: 065
     Dates: end: 20121226
  10. WARFARIN SODIUM [Concomitant]
     Route: 065
  11. MAGNESIUM OXIDE [Concomitant]
     Route: 065
  12. OMEPRAZOLE [Concomitant]
     Route: 065
  13. SODIUM BICARBONATE [Concomitant]
     Route: 065
  14. ALENDRONATE [Concomitant]
     Dosage: 1 TABLET EVERY SUNDAY
     Route: 065
  15. FERROUS SULPHATE [Concomitant]
     Route: 065
  16. CALCIMATE [Concomitant]
     Route: 065
  17. VITAMIN [Concomitant]
     Route: 065
  18. VITAMIN B12 [Concomitant]
     Route: 065
  19. CALCIUM AND VITAMIN D3 [Concomitant]
     Dosage: 600 MG CALCIUM + 800 IU VIT D-3
     Route: 065
  20. POTASSIUM CITRATE [Concomitant]
     Route: 065
  21. VITAMIN D [Concomitant]
     Route: 048
     Dates: start: 20120515
  22. CLARITIN [Concomitant]
     Indication: PREMEDICATION
     Route: 065

REACTIONS (3)
  - Pain [Recovering/Resolving]
  - Thrombosis [Recovered/Resolved]
  - Rash [Recovering/Resolving]
